FAERS Safety Report 8449889-X (Version None)
Quarter: 2012Q2

REPORT INFORMATION
  Report Type: 
  Country: None (occurrence: None)
  Receive Date: 20120620
  Receipt Date: 20120614
  Transmission Date: 20120825
  Serious: Yes (Death, Hospitalization)
  Sender: FDA-Public Use
  Company Number: FR-JNJFOC-EMADSS2000002111

PATIENT
  Age: 18 Year
  Sex: Male

DRUGS (11)
  1. LEPTICUR [Suspect]
     Indication: PRODUCT USED FOR UNKNOWN INDICATION
     Route: 048
     Dates: start: 20001206, end: 20001206
  2. CLONAZEPAM [Suspect]
     Route: 048
     Dates: start: 20001207
  3. CLOPIXOL [Suspect]
     Route: 030
     Dates: start: 20001207, end: 20001207
  4. CLONAZEPAM [Suspect]
     Indication: PRODUCT USED FOR UNKNOWN INDICATION
     Route: 048
     Dates: start: 20001206, end: 20001206
  5. RISPERDAL [Suspect]
     Indication: PRODUCT USED FOR UNKNOWN INDICATION
     Route: 048
     Dates: start: 20001207, end: 20001207
  6. RISPERDAL [Suspect]
     Route: 048
     Dates: start: 20001208, end: 20001209
  7. CLOPIXOL [Suspect]
     Indication: PRODUCT USED FOR UNKNOWN INDICATION
     Route: 048
     Dates: start: 20001211
  8. LEPTICUR [Suspect]
     Route: 048
     Dates: start: 20001207, end: 20001207
  9. TERCIAN [Suspect]
     Indication: PRODUCT USED FOR UNKNOWN INDICATION
     Route: 065
     Dates: start: 20001206, end: 20001206
  10. NOZINAN [Suspect]
     Indication: PRODUCT USED FOR UNKNOWN INDICATION
     Route: 048
     Dates: start: 20001210
  11. NOZINAN [Suspect]
     Route: 030
     Dates: start: 20001208, end: 20001210

REACTIONS (3)
  - CARDIO-RESPIRATORY ARREST [None]
  - COMA [None]
  - CARDIAC ARREST [None]
